FAERS Safety Report 9104280 (Version 2)
Quarter: 2013Q2

REPORT INFORMATION
  Report Type: Report from Study
  Country: AU (occurrence: AU)
  Receive Date: 20130219
  Receipt Date: 20130422
  Transmission Date: 20140414
  Serious: Yes (Death, Hospitalization)
  Sender: FDA-Public Use
  Company Number: PHHY2013AU016224

PATIENT
  Age: 64 Year
  Sex: Female

DRUGS (7)
  1. CLOZARIL [Suspect]
     Dosage: 500 MG UNK
     Dates: start: 19960726
  2. ASENAPINE [Concomitant]
     Indication: SCHIZOPHRENIA
     Dosage: 15 MG, QD (5 MG MORNING AND 10 MG AT NIGHT)
     Route: 048
  3. ATORVASTATIN [Concomitant]
     Indication: LIPIDS INCREASED
     Dosage: 40 MG, AT NIGHT
     Route: 048
  4. OXYBUTYNIN [Concomitant]
     Dosage: 5 MG, TID
     Route: 048
  5. SERTRALINE [Concomitant]
     Indication: DEPRESSION
     Dosage: 100 MG, IN MORNING
     Route: 048
  6. DIPYRIDAMOLE [Concomitant]
     Indication: TRANSIENT ISCHAEMIC ATTACK
     Dosage: 200 MG, BID
     Route: 048
  7. ASPIRIN [Concomitant]
     Indication: CEREBROVASCULAR ACCIDENT
     Dosage: 25 MG, BID

REACTIONS (8)
  - Respiratory failure [Fatal]
  - Intentional overdose [Fatal]
  - Antipsychotic drug level increased [Fatal]
  - Mental disorder [Unknown]
  - Haemoglobin decreased [Unknown]
  - Blood glucose increased [Unknown]
  - Blood lactic acid increased [Unknown]
  - Blood bicarbonate decreased [Unknown]
